FAERS Safety Report 7655396-4 (Version None)
Quarter: 2011Q3

REPORT INFORMATION
  Report Type: 
  Country: None (occurrence: None)
  Receive Date: 20110804
  Receipt Date: 20110726
  Transmission Date: 20111222
  Serious: Yes (Hospitalization, Other)
  Sender: FDA-Public Use
  Company Number: GB-JNJFOC-20110702741

PATIENT
  Age: 36 Year
  Sex: Male

DRUGS (5)
  1. CITALOPRAM [Concomitant]
     Route: 065
  2. IBUPROFEN [Suspect]
     Indication: TOOTHACHE
     Route: 048
     Dates: start: 20110609, end: 20110622
  3. DIAZEPAM [Concomitant]
     Route: 065
  4. METHADONE HYDROCHLORIDE [Concomitant]
     Route: 065
  5. OLANZAPINE [Concomitant]
     Route: 065

REACTIONS (2)
  - INCORRECT DOSE ADMINISTERED [None]
  - DUODENAL ULCER PERFORATION [None]
